FAERS Safety Report 8496654-3 (Version None)
Quarter: 2012Q3

REPORT INFORMATION
  Report Type: 
  Country: None (occurrence: None)
  Receive Date: 20120709
  Receipt Date: 20120625
  Transmission Date: 20120928
  Serious: Yes (Hospitalization)
  Sender: FDA-Public Use
  Company Number: ES-MYLANLABS-2012S1013291

PATIENT
  Age: 69 Year
  Sex: Female

DRUGS (9)
  1. RIFABUTIN [Concomitant]
     Indication: TUBERCULOSIS
     Route: 065
  2. COTRIM [Concomitant]
     Indication: PROPHYLAXIS
     Route: 048
  3. CASPOFUNGIN ACETATE [Concomitant]
     Indication: ASPERGILLOSIS
     Route: 065
  4. TACROLIMUS [Suspect]
     Indication: IMMUNOSUPPRESSANT DRUG THERAPY
     Route: 065
  5. MYCOPHENOLATE MOFETIL [Suspect]
     Indication: IMMUNOSUPPRESSANT DRUG THERAPY
     Route: 065
  6. LEVOFLOXACIN [Concomitant]
     Indication: TUBERCULOSIS
     Route: 065
  7. ISONIAZID [Suspect]
     Indication: TUBERCULOSIS
     Route: 065
  8. PYRAZINAMIDE [Suspect]
     Indication: TUBERCULOSIS
     Route: 065
  9. ETHAMBUTOL HYDROCHLORIDE [Concomitant]
     Indication: TUBERCULOSIS
     Route: 065

REACTIONS (3)
  - TUBERCULOSIS [None]
  - HYPERURICAEMIA [None]
  - HEPATOTOXICITY [None]
